FAERS Safety Report 17135823 (Version 3)
Quarter: 2020Q3

REPORT INFORMATION
  Report Type: Report from Study
  Country: US (occurrence: US)
  Receive Date: 20191210
  Receipt Date: 20200923
  Transmission Date: 20201102
  Serious: No
  Sender: FDA-Public Use
  Company Number: NVSC2019US064470

PATIENT
  Age: 72 Year
  Sex: Male

DRUGS (3)
  1. ENTRESTO [Suspect]
     Active Substance: SACUBITRIL\VALSARTAN
     Indication: CARDIAC FAILURE
     Dosage: 2 DF (49 MG SACUBITRIL/ 51 MG VALSARTAN), BID
     Route: 048
     Dates: start: 201910
  2. ENTRESTO [Suspect]
     Active Substance: SACUBITRIL\VALSARTAN
     Dosage: 1 DF (97 MG SACUBITRIL/ 103 MG VALSARTAN), BID
     Route: 048
  3. ENTRESTO [Suspect]
     Active Substance: SACUBITRIL\VALSARTAN
     Indication: CARDIAC FAILURE
     Dosage: 1 DF (49 MG SACUBITRIL/ 51 MG VALSARTAN), BID
     Route: 048
     Dates: start: 201911

REACTIONS (4)
  - Arthralgia [Unknown]
  - Peripheral swelling [Unknown]
  - Glycosylated haemoglobin increased [Unknown]
  - Weight decreased [Recovering/Resolving]

NARRATIVE: CASE EVENT DATE: 201911
